FAERS Safety Report 9272031 (Version 3)
Quarter: 2013Q3

REPORT INFORMATION
  Report Type: Spontaneous
  Country: US (occurrence: US)
  Receive Date: 20130506
  Receipt Date: 20130926
  Transmission Date: 20140515
  Serious: Yes (Hospitalization, Disabling, Other)
  Sender: FDA-Public Use
  Company Number: US-GILEAD-2013-0074214

PATIENT
  Age: 70 Year
  Sex: Female

DRUGS (2)
  1. CAYSTON [Suspect]
     Indication: PULMONARY FIBROSIS
     Dosage: 75 MG, TID
     Route: 055
     Dates: start: 20120912, end: 20130423
  2. CAYSTON [Suspect]
     Dosage: 75 MG, BID
     Route: 055

REACTIONS (13)
  - Pseudomonas infection [Recovering/Resolving]
  - Malaise [Recovering/Resolving]
  - Pain [Recovering/Resolving]
  - Feeling abnormal [Recovering/Resolving]
  - Gait disturbance [Recovering/Resolving]
  - Thinking abnormal [Recovering/Resolving]
  - Osteoarthritis [Unknown]
  - Joint effusion [Unknown]
  - Tendon disorder [Unknown]
  - Tendon rupture [Unknown]
  - Drug ineffective [Unknown]
  - Arthralgia [Recovering/Resolving]
  - Cough [Unknown]
